FAERS Safety Report 7945015-1 (Version None)
Quarter: 2011Q4

REPORT INFORMATION
  Report Type: 
  Country: None (occurrence: None)
  Receive Date: 20111129
  Receipt Date: 20111116
  Transmission Date: 20120403
  Serious: Yes (Hospitalization, Other)
  Sender: FDA-Public Use
  Company Number: JP-CELGENEUS-087-50794-11070967

PATIENT
  Sex: Male

DRUGS (21)
  1. VIDAZA [Suspect]
     Dosage: 75 MILLIGRAM/SQ. METER
     Route: 041
     Dates: start: 20110811, end: 20110817
  2. ADONA [Concomitant]
     Dosage: 90 MILLIGRAM
     Route: 048
  3. PURSENNID [Concomitant]
     Dosage: 24 MILLIGRAM
     Route: 048
     Dates: start: 20110722
  4. ZITHROMAX [Concomitant]
     Dosage: 500 MILLIGRAM
     Route: 048
     Dates: start: 20110819, end: 20110821
  5. VIDAZA [Suspect]
     Dosage: 75 MILLIGRAM/SQ. METER
     Route: 041
     Dates: start: 20110517, end: 20110523
  6. MAGNESIUM SULFATE [Concomitant]
     Dosage: 2000 MILLIGRAM
     Route: 048
     Dates: start: 20111004
  7. VIDAZA [Suspect]
     Dosage: 75 MILLIGRAM/SQ. METER
     Route: 041
     Dates: start: 20110419, end: 20110425
  8. CONIEL [Concomitant]
     Dosage: 4 MILLIGRAM
     Route: 048
  9. DEPAS [Concomitant]
     Dosage: .5 MILLIGRAM
     Route: 048
  10. VIDAZA [Suspect]
     Dosage: 75 MILLIGRAM/SQ. METER
     Route: 041
     Dates: start: 20110930, end: 20111006
  11. EBRANTIL [Concomitant]
     Dosage: 60 MILLIGRAM
     Route: 048
  12. MICARDIS [Concomitant]
     Dosage: 40 MILLIGRAM
     Route: 048
  13. ROCEPHIN [Concomitant]
     Dosage: 2 GRAM
     Route: 041
     Dates: start: 20110719, end: 20110720
  14. VIDAZA [Suspect]
     Dosage: 75 MILLIGRAM/SQ. METER
     Route: 041
     Dates: start: 20110714, end: 20110720
  15. ISODINE GARGLE [Concomitant]
     Route: 065
  16. PROTECADIN [Concomitant]
     Dosage: 10 MILLIGRAM
     Route: 048
  17. JUVELA [Concomitant]
     Dosage: 150 MILLIGRAM
     Route: 048
  18. NASPALUN [Concomitant]
     Dosage: 2 GRAM
     Route: 041
     Dates: start: 20110819, end: 20110830
  19. VIDAZA [Suspect]
     Dosage: 75 MILLIGRAM/SQ. METER
     Route: 041
     Dates: start: 20110616, end: 20110622
  20. ALOXI [Concomitant]
     Dosage: .75 MILLIGRAM
     Route: 041
  21. HYDROCORTISONE SODIUM SUCCINATE [Concomitant]
     Dosage: 100 MILLIGRAM
     Route: 041
     Dates: start: 20110623

REACTIONS (15)
  - PLEURISY [None]
  - BLOOD CHLORIDE INCREASED [None]
  - PLATELET COUNT DECREASED [None]
  - NEUTROPHIL COUNT DECREASED [None]
  - WHITE BLOOD CELL COUNT INCREASED [None]
  - BLOOD SODIUM DECREASED [None]
  - BLOOD CALCIUM DECREASED [None]
  - BLOOD PHOSPHORUS INCREASED [None]
  - PYREXIA [None]
  - BLOOD POTASSIUM INCREASED [None]
  - BLAST CELL CRISIS [None]
  - BLOOD UREA INCREASED [None]
  - EOSINOPHIL COUNT DECREASED [None]
  - EPISTAXIS [None]
  - BLOOD BICARBONATE INCREASED [None]
